FAERS Safety Report 16327593 (Version 1)
Quarter: 2019Q2

REPORT INFORMATION
  Report Type: Spontaneous
  Country: GB (occurrence: GB)
  Receive Date: 20190517
  Receipt Date: 20190517
  Transmission Date: 20190711
  Serious: Yes (Other)
  Sender: FDA-Public Use
  Company Number: GB-ALLERGAN-1920597US

PATIENT
  Weight: 2.26 kg

DRUGS (2)
  1. URSODEOXYCHOLIC ACID UNK [Suspect]
     Active Substance: URSODIOL
     Indication: MATERNAL EXPOSURE DURING PREGNANCY
     Dosage: 1000-2000 MG IN DIVIDED DAILY DOSES
     Route: 064
  2. RIFAMPICIN [Suspect]
     Active Substance: RIFAMPIN
     Indication: MATERNAL EXPOSURE DURING PREGNANCY
     Dosage: 300-600 MG IN DIVIDED DOSES DAILY
     Route: 064

REACTIONS (2)
  - Premature labour [Unknown]
  - Meconium in amniotic fluid [Unknown]
